FAERS Safety Report 7501582-3 (Version None)
Quarter: 2011Q2

REPORT INFORMATION
  Report Type: 
  Country: None (occurrence: None)
  Receive Date: 20110524
  Receipt Date: 20110516
  Transmission Date: 20111010
  Serious: Yes (Hospitalization)
  Sender: FDA-Public Use
  Company Number: IT-ABBOTT-11P-083-0722280-00

PATIENT
  Sex: Female

DRUGS (1)
  1. CLARITHROMYCIN [Suspect]
     Indication: TONSILLITIS
     Dosage: 500 MG
     Route: 048
     Dates: start: 20110117, end: 20110118

REACTIONS (1)
  - RASH MACULO-PAPULAR [None]
